FAERS Safety Report 20905838 (Version 6)
Quarter: 2025Q4

REPORT INFORMATION
  Report Type: Report from Study
  Country: CH (occurrence: CH)
  Receive Date: 20220602
  Receipt Date: 20251120
  Transmission Date: 20260118
  Serious: Yes (Hospitalization)
  Sender: PFIZER
  Company Number: CH-PFM-2022-00271

PATIENT
  Age: 54 Year
  Sex: Male
  Weight: 69 kg

DRUGS (19)
  1. ENCORAFENIB [Suspect]
     Active Substance: ENCORAFENIB
     Indication: Malignant melanoma
     Dosage: QD (1/DAY)
     Route: 048
     Dates: start: 20211201, end: 20211216
  2. ENCORAFENIB [Suspect]
     Active Substance: ENCORAFENIB
     Dosage: QD (1/DAY)
     Route: 048
     Dates: start: 20220102, end: 20220117
  3. BINIMETINIB [Suspect]
     Active Substance: BINIMETINIB
     Indication: Malignant melanoma
     Dosage: BID (2/DAY)
     Route: 048
     Dates: start: 20211201, end: 20211216
  4. BINIMETINIB [Suspect]
     Active Substance: BINIMETINIB
     Dosage: BID (2/DAY)
     Route: 048
     Dates: start: 20220102, end: 20220117
  5. DEXAMETHASONE [Concomitant]
     Active Substance: DEXAMETHASONE
     Indication: Metastases to central nervous system
     Dosage: UNK
     Dates: start: 202109, end: 20220116
  6. MOMETASONE [Concomitant]
     Active Substance: MOMETASONE
     Indication: Prophylaxis
     Dosage: UNK
     Dates: start: 20201104, end: 20220116
  7. CEFTRIAXONE [Concomitant]
     Active Substance: CEFTRIAXONE
     Indication: Prophylaxis
     Dosage: UNK
     Route: 065
     Dates: start: 20211215, end: 20211215
  8. CIPROFLOXACIN [Concomitant]
     Active Substance: CIPROFLOXACIN
     Indication: Prophylaxis
     Dosage: UNK
     Route: 065
     Dates: start: 20211215, end: 20211229
  9. METRONIDAZOLE [Concomitant]
     Active Substance: METRONIDAZOLE
     Indication: Prophylaxis
     Dosage: UNK
     Route: 065
     Dates: start: 20211215, end: 20211229
  10. LACTASE [Concomitant]
     Active Substance: LACTASE
     Dosage: UNK
     Dates: start: 20220113, end: 20220116
  11. ENOXAPARIN SODIUM [Concomitant]
     Active Substance: ENOXAPARIN SODIUM
     Indication: Prophylaxis
     Dosage: UNK
     Dates: start: 20220116, end: 20220120
  12. ASPIRIN [Concomitant]
     Active Substance: ASPIRIN
     Indication: Prophylaxis
     Dosage: UNK
     Dates: start: 20220117
  13. ROSUVASTATIN [Concomitant]
     Active Substance: ROSUVASTATIN
     Indication: Prophylaxis
     Dosage: UNK
     Dates: start: 20220116
  14. PANTOPRAZOLE [Concomitant]
     Active Substance: PANTOPRAZOLE
     Indication: Prophylaxis
     Dosage: UNK
     Dates: start: 20220117, end: 20220118
  15. PANTOPRAZOLE [Concomitant]
     Active Substance: PANTOPRAZOLE
     Dosage: UNK
     Dates: start: 20220119, end: 20220121
  16. LORAZEPAM [Concomitant]
     Active Substance: LORAZEPAM
     Indication: Prophylaxis
     Dosage: UNK
     Dates: start: 20220116, end: 20220117
  17. LORAZEPAM [Concomitant]
     Active Substance: LORAZEPAM
     Dosage: UNK
     Dates: start: 20220119, end: 20220120
  18. ASPIRIN [Concomitant]
     Active Substance: ASPIRIN
     Indication: Prophylaxis
     Dosage: MONOVA CREAM
     Dates: start: 20220203
  19. LACTODIGEST [Concomitant]
     Dosage: UNK
     Dates: start: 20220203

REACTIONS (9)
  - Peritonitis [Recovered/Resolved]
  - Abdominal pain [Recovered/Resolved]
  - Nausea [Recovered/Resolved]
  - Fatigue [Recovered/Resolved]
  - Decreased appetite [Recovered/Resolved]
  - Impaired healing [Recovered/Resolved]
  - Vitamin D deficiency [Unknown]
  - Vision blurred [Recovered/Resolved]
  - Fatigue [Recovered/Resolved]

NARRATIVE: CASE EVENT DATE: 20211213
